FAERS Safety Report 13255524 (Version 1)
Quarter: 2017Q1

REPORT INFORMATION
  Report Type: Spontaneous
  Country: US (occurrence: US)
  Receive Date: 20170218
  Receipt Date: 20170218
  Transmission Date: 20170428
  Serious: Yes (Hospitalization, Other)
  Sender: FDA-Public Use
  Company Number: None

PATIENT
  Age: 28 Year
  Sex: Female
  Weight: 63 kg

DRUGS (8)
  1. LEXIBRO [Concomitant]
  2. VITAMIN A [Concomitant]
     Active Substance: VITAMIN A
  3. NAPROXEN SODIUM. [Concomitant]
     Active Substance: NAPROXEN SODIUM
  4. VITAMIN B12 [Concomitant]
     Active Substance: CYANOCOBALAMIN
  5. VITAMIN C [Concomitant]
     Active Substance: ASCORBIC ACID
  6. VITAMIN D [Concomitant]
     Active Substance: CHOLECALCIFEROL
  7. GABAPENTIN. [Concomitant]
     Active Substance: GABAPENTIN
  8. ZUBSOLV [Suspect]
     Active Substance: BUPRENORPHINE HYDROCHLORIDE\NALOXONE HYDROCHLORIDE
     Indication: DRUG DEPENDENCE
     Dosage: ?          QUANTITY:1 TABLET(S);?
     Route: 048

REACTIONS (10)
  - Blister [None]
  - Asthma [None]
  - Dizziness [None]
  - Tremor [None]
  - Product substitution issue [None]
  - Anxiety [None]
  - Presyncope [None]
  - Rash [None]
  - Burning sensation [None]
  - Withdrawal syndrome [None]

NARRATIVE: CASE EVENT DATE: 20170217
